FAERS Safety Report 24165040 (Version 1)
Quarter: 2024Q3

REPORT INFORMATION
  Report Type: Report from Study
  Country: US (occurrence: None)
  Receive Date: 20240802
  Receipt Date: 20240802
  Transmission Date: 20241017
  Serious: Yes (Other)
  Sender: ASTRAZENECA
  Company Number: 2023A215152

PATIENT
  Age: 24965 Day
  Sex: Female

DRUGS (1)
  1. FASENRA [Suspect]
     Active Substance: BENRALIZUMAB
     Dosage: 30.0MG/ML UNKNOWN
     Route: 058

REACTIONS (7)
  - Bronchospasm [Unknown]
  - Aphasia [Unknown]
  - Illness [Unknown]
  - Fatigue [Unknown]
  - Drug ineffective [Unknown]
  - Product distribution issue [Unknown]
  - Drug dispensed to wrong patient [Unknown]

NARRATIVE: CASE EVENT DATE: 20230918
